FAERS Safety Report 25949973 (Version 1)
Quarter: 2025Q4

REPORT INFORMATION
  Report Type: Report from Study
  Country: US (occurrence: US)
  Receive Date: 20251022
  Receipt Date: 20251022
  Transmission Date: 20260118
  Serious: Yes (Hospitalization)
  Sender: ALEXION PHARMACEUTICALS
  Company Number: US-AstraZeneca-CH-00975133A

PATIENT
  Sex: Male
  Weight: 97.975 kg

DRUGS (1)
  1. ACALABRUTINIB [Suspect]
     Active Substance: ACALABRUTINIB
     Indication: Mantle cell lymphoma
     Dosage: 100 MILLIGRAM, BID
     Dates: start: 202506

REACTIONS (4)
  - Diarrhoea [Recovering/Resolving]
  - Chest pain [Recovering/Resolving]
  - Thrombosis [Unknown]
  - Pulmonary thrombosis [Unknown]
